FAERS Safety Report 25145511 (Version 1)
Quarter: 2025Q2

REPORT INFORMATION
  Report Type: Spontaneous
  Country: US (occurrence: None)
  Receive Date: 20250401
  Receipt Date: 20250401
  Transmission Date: 20250717
  Serious: Yes (Hospitalization)
  Sender: FDA-CTU
  Company Number: None

PATIENT
  Age: 62 Year
  Sex: Female
  Weight: 110.9 kg

DRUGS (10)
  1. APIXABAN [Suspect]
     Active Substance: APIXABAN
     Indication: Pulmonary embolism
     Dosage: FREQUENCY : TWICE A DAY;?
     Route: 048
     Dates: start: 20241118, end: 20250116
  2. PREDNISONE [Concomitant]
     Active Substance: PREDNISONE
  3. MOrphine 20mg/ml concentrate [Concomitant]
  4. Symbiocort 160/4.5mcg/inh [Concomitant]
  5. Albuterol 90mcg/inh [Concomitant]
  6. FLUOXETINE [Concomitant]
     Active Substance: FLUOXETINE HYDROCHLORIDE
  7. LAMOTRIGINE [Concomitant]
     Active Substance: LAMOTRIGINE
  8. HYDROXYZINE [Concomitant]
     Active Substance: HYDROXYZINE HYDROCHLORIDE
  9. OMEPRAZOLE [Concomitant]
     Active Substance: OMEPRAZOLE
  10. ATENOLOL [Concomitant]
     Active Substance: ATENOLOL

REACTIONS (6)
  - Dyspnoea [None]
  - Pneumonia lipoid [None]
  - Emphysema [None]
  - Lung opacity [None]
  - Pulmonary alveolar haemorrhage [None]
  - Therapy cessation [None]

NARRATIVE: CASE EVENT DATE: 20250111
